FAERS Safety Report 4912999-5 (Version None)
Quarter: 2006Q1

REPORT INFORMATION
  Report Type: 
  Country: None (occurrence: None)
  Receive Date: 20060210
  Receipt Date: 20060202
  Transmission Date: 20060701
  Serious: Yes (Hospitalization)
  Sender: FDA-Public Use
  Company Number: OSCN-PR-0602S-0037

PATIENT
  Age: 46 Year
  Sex: Female

DRUGS (2)
  1. OMNISCAN [Suspect]
     Indication: NECK PAIN
     Dosage: SEE IMAGE, INTRADISCAL
     Route: 024
     Dates: start: 20060118, end: 20060118
  2. CEFAZOLIN SODIUM (KEFZOL) [Concomitant]

REACTIONS (6)
  - CONVULSION [None]
  - DISORIENTATION [None]
  - HALLUCINATION [None]
  - INCORRECT ROUTE OF DRUG ADMINISTRATION [None]
  - VOMITING [None]
  - WRONG TECHNIQUE IN DRUG USAGE PROCESS [None]
